FAERS Safety Report 8068238-2 (Version None)
Quarter: 2012Q1

REPORT INFORMATION
  Report Type: 
  Country: None (occurrence: None)
  Receive Date: 20120124
  Receipt Date: 20111004
  Transmission Date: 20120608
  Serious: No
  Sender: FDA-Public Use
  Company Number: US-AMGEN-USASP2011051130

PATIENT
  Sex: Female

DRUGS (9)
  1. CITRACAL [Concomitant]
     Dosage: UNK
  2. PROLIA [Suspect]
     Indication: PRODUCT USED FOR UNKNOWN INDICATION
     Dosage: 60 MG, Q6MO
     Dates: start: 20110722
  3. VITAMIN D [Concomitant]
     Dosage: UNK
     Dates: start: 20110101
  4. CALCIUM CARBONATE [Concomitant]
     Dosage: UNK
     Dates: start: 20110701, end: 20110101
  5. ALLEGRA [Concomitant]
     Dosage: UNK
  6. CALCIUM [Concomitant]
     Dosage: UNK
     Dates: start: 20110101
  7. ASTELIN [Concomitant]
     Dosage: UNK
  8. NASONEX [Concomitant]
     Dosage: UNK
  9. VAGISIL [Concomitant]
     Dosage: UNK

REACTIONS (10)
  - PRURITUS GENERALISED [None]
  - MILK ALLERGY [None]
  - FEELING ABNORMAL [None]
  - DECREASED APPETITE [None]
  - RASH [None]
  - NAUSEA [None]
  - FATIGUE [None]
  - MULTIPLE ALLERGIES [None]
  - WEIGHT DECREASED [None]
  - PAIN [None]
